FAERS Safety Report 12501194 (Version 1)
Quarter: 2016Q2

REPORT INFORMATION
  Report Type: Not Available
  Country: NO (occurrence: NO)
  Receive Date: 20160627
  Receipt Date: 20160627
  Transmission Date: 20160815
  Serious: Yes (Hospitalization, Other)
  Sender: FDA-Public Use
  Company Number: NO-PURDUE PHARMA-GBR-2016-0037171

PATIENT

DRUGS (1)
  1. TARGINIQ ER [Suspect]
     Active Substance: NALOXONE HYDROCHLORIDE\OXYCODONE HYDROCHLORIDE
     Indication: PAIN
     Dosage: 40/20MG + 80/40MG+ 40/20MG
     Route: 048
     Dates: start: 20160526, end: 20160526

REACTIONS (3)
  - Psychiatric symptom [Recovered/Resolved with Sequelae]
  - Delusion [Recovered/Resolved with Sequelae]
  - Diarrhoea [Unknown]

NARRATIVE: CASE EVENT DATE: 20160526
